FAERS Safety Report 5880289-2 (Version None)
Quarter: 2008Q3

REPORT INFORMATION
  Report Type: 
  Country: None (occurrence: None)
  Receive Date: 20080912
  Receipt Date: 20080905
  Transmission Date: 20090109
  Serious: Yes (Other)
  Sender: FDA-Public Use
  Company Number: PHHY2008GB20293

PATIENT
  Sex: Male

DRUGS (3)
  1. CLOZARIL [Suspect]
     Indication: SCHIZOPHRENIA
     Dosage: 625 MG
  2. ARIPIPRAZOLE [Concomitant]
     Dosage: 10 MG
     Dates: start: 20041116
  3. ARIPIPRAZOLE [Concomitant]
     Dosage: 15 MG
     Dates: start: 20051208

REACTIONS (1)
  - ALCOHOLIC SEIZURE [None]
